FAERS Safety Report 10153492 (Version 1)
Quarter: 2014Q2

REPORT INFORMATION
  Report Type: Spontaneous
  Country: BR (occurrence: BR)
  Receive Date: 20140505
  Receipt Date: 20140505
  Transmission Date: 20141212
  Serious: Yes (Hospitalization, Other)
  Sender: FDA-Public Use
  Company Number: BR-009507513-1404BRA015017

PATIENT
  Age: 32 Year
  Sex: Female
  Weight: 102 kg

DRUGS (1)
  1. NUVARING [Suspect]
     Indication: MENSTRUAL CYCLE MANAGEMENT
     Dosage: 3 WEEKS IN SITU AND 1 WEEK OF PAUSE
     Route: 067
     Dates: start: 2009, end: 20140420

REACTIONS (10)
  - Thyroid cancer [Recovered/Resolved with Sequelae]
  - Thyroidectomy [Recovered/Resolved]
  - Radiotherapy [Recovered/Resolved]
  - Road traffic accident [Unknown]
  - Spinal fracture [Unknown]
  - Somnolence [Recovered/Resolved]
  - Dyspepsia [Unknown]
  - Dysphonia [Unknown]
  - Incorrect drug administration duration [Unknown]
  - Off label use [Unknown]
